FAERS Safety Report 4291471-2 (Version None)
Quarter: 2004Q1

REPORT INFORMATION
  Report Type: 
  Country: None (occurrence: None)
  Receive Date: 20040126
  Receipt Date: 20031022
  Transmission Date: 20041129
  Serious: No
  Sender: FDA-Public Use
  Company Number: USA031050566

PATIENT
  Age: 53 Year
  Sex: Female
  Weight: 60.782 kg

DRUGS (1)
  1. FORTEO [Suspect]
     Indication: OSTEOPOROSIS
     Dates: start: 20031016

REACTIONS (1)
  - CLUSTER HEADACHE [None]
